FAERS Safety Report 22149258 (Version 2)
Quarter: 2023Q1

REPORT INFORMATION
  Report Type: Spontaneous
  Country: JP (occurrence: JP)
  Receive Date: 20230329
  Receipt Date: 20230331
  Transmission Date: 20230418
  Serious: Yes (Hospitalization)
  Sender: FDA-Public Use
  Company Number: JP-BIOGEN-2023BI01194448

PATIENT
  Age: 0 Year
  Sex: Male

DRUGS (1)
  1. SPINRAZA [Suspect]
     Active Substance: NUSINERSEN
     Indication: Spinal muscular atrophy
     Route: 050
     Dates: start: 20230316

REACTIONS (3)
  - Streptococcal sepsis [Unknown]
  - Septic shock [Unknown]
  - Meningitis [Unknown]

NARRATIVE: CASE EVENT DATE: 20230316
